FAERS Safety Report 8408877-X (Version None)
Quarter: 2012Q2

REPORT INFORMATION
  Report Type: 
  Country: None (occurrence: None)
  Receive Date: 20120604
  Receipt Date: 20120525
  Transmission Date: 20120825
  Serious: Yes (Hospitalization)
  Sender: FDA-Public Use
  Company Number: CN-ABBOTT-12P-035-0942035-00

PATIENT
  Age: 33 Year
  Sex: Female

DRUGS (2)
  1. LUPRON [Suspect]
     Indication: HAEMORRHAGIC OVARIAN CYST
     Route: 058
     Dates: start: 20120516
  2. LUPRON [Suspect]
     Indication: UTERINE LEIOMYOMA

REACTIONS (5)
  - DYSPNOEA [None]
  - ABDOMINAL DISTENSION [None]
  - PALLOR [None]
  - CYANOSIS [None]
  - HYPOPHAGIA [None]
